FAERS Safety Report 6417618-7 (Version None)
Quarter: 2009Q4

REPORT INFORMATION
  Report Type: 
  Country: None (occurrence: None)
  Receive Date: 20091026
  Receipt Date: 20091013
  Transmission Date: 20100525
  Serious: Yes (Other)
  Sender: FDA-Public Use
  Company Number: ADR37512009

PATIENT
  Age: 50 Year
  Sex: Male

DRUGS (1)
  1. SIMVASTATIN [Suspect]
     Dosage: 5 MG
     Dates: start: 19900201, end: 19920701

REACTIONS (4)
  - BLOOD CREATINE PHOSPHOKINASE INCREASED [None]
  - DERMATOMYOSITIS [None]
  - MUSCULAR WEAKNESS [None]
  - MYOSITIS [None]
